FAERS Safety Report 8101777-4 (Version None)
Quarter: 2012Q1

REPORT INFORMATION
  Report Type: 
  Country: None (occurrence: None)
  Receive Date: 20120131
  Receipt Date: 20120120
  Transmission Date: 20120608
  Serious: Yes (Hospitalization, Other)
  Sender: FDA-Public Use
  Company Number: PHHY2011DE45232

PATIENT
  Sex: Male
  Weight: 60 kg

DRUGS (8)
  1. CARVEDILOL [Concomitant]
     Indication: HYPERTENSION
     Dosage: 12.5 MG, BID
     Route: 048
  2. OLMESARTAN MEDOXOMIL [Concomitant]
     Indication: HYPERTENSION
     Dosage: IF NEEDED
     Route: 048
  3. MYCOPHENOLATE MOFETIL (CELLCEPT) [Suspect]
     Indication: RENAL TRANSPLANT
     Dosage: 5 MG
     Route: 048
     Dates: start: 20040601
  4. AMLODIPINE [Concomitant]
     Indication: HYPERTENSION
     Dosage: 5 MG, QD
     Route: 048
  5. PREDNISONE TAB [Suspect]
     Indication: RENAL TRANSPLANT
     Dosage: 5 MG, UP TO 30 MG IF NEEDED
     Route: 048
     Dates: start: 20040601
  6. DIURETICS [Concomitant]
     Indication: HYPERTENSION
     Dosage: IF NEEDED
     Route: 048
  7. PRAVASTATIN [Concomitant]
     Indication: HYPERLIPIDAEMIA
     Route: 048
  8. SANDIMMUNE [Suspect]
     Indication: RENAL TRANSPLANT
     Dosage: 170 MG, QD
     Route: 048
     Dates: start: 20040601

REACTIONS (6)
  - PERIPHERAL ARTERY ANEURYSM [None]
  - BLOOD PRESSURE DIFFERENCE OF EXTREMITIES [None]
  - GASTROINTESTINAL DISORDER [None]
  - AORTIC ANEURYSM [None]
  - CROHN'S DISEASE [None]
  - ABNORMAL FAECES [None]
